FAERS Safety Report 17432363 (Version 2)
Quarter: 2020Q1

REPORT INFORMATION
  Report Type: Spontaneous
  Country: PK (occurrence: PK)
  Receive Date: 20200218
  Receipt Date: 20200324
  Transmission Date: 20200409
  Serious: Yes (Hospitalization, Other)
  Sender: FDA-Public Use
  Company Number: PK-SA-2019SA324076

PATIENT
  Age: 26 Year
  Sex: Female
  Weight: 90 kg

DRUGS (4)
  1. LANTUS SOLOSTAR [Suspect]
     Active Substance: INSULIN GLARGINE
     Dosage: 18 IU, HS
     Route: 058
  2. LANTUS SOLOSTAR [Suspect]
     Active Substance: INSULIN GLARGINE
     Indication: DIABETES MELLITUS
     Dosage: 8 IU, HS
     Route: 058
     Dates: start: 20191119
  3. APIDRA SOLOSTAR [Suspect]
     Active Substance: INSULIN GLULISINE
     Dosage: 28+28+18IU
     Route: 065
  4. APIDRA SOLOSTAR [Suspect]
     Active Substance: INSULIN GLULISINE
     Indication: DIABETES MELLITUS
     Dosage: OF 6 INTERNATIONAL UNITS AND 10 INTERNATIONAL UNITS
     Route: 065
     Dates: start: 20191119

REACTIONS (3)
  - Diabetes mellitus inadequate control [Unknown]
  - Intentional dose omission [Unknown]
  - Exposure during pregnancy [Unknown]
